FAERS Safety Report 5669902-2 (Version None)
Quarter: 2008Q1

REPORT INFORMATION
  Report Type: 
  Country: None (occurrence: None)
  Receive Date: 20080314
  Receipt Date: 20080314
  Transmission Date: 20080703
  Serious: Yes (Other)
  Sender: FDA-Public Use
  Company Number: None

PATIENT
  Sex: Female

DRUGS (26)
  1. NAFCILLIN SODIUM [Suspect]
     Indication: STAPHYLOCOCCAL INFECTION
     Dosage: 6 GM IV Q 12 HRS BY CONTINUOUS INFUSION
     Route: 042
     Dates: start: 20080222, end: 20080229
  2. NORVASC [Concomitant]
  3. TRAZDONE [Concomitant]
  4. LANTUS [Concomitant]
  5. CYCLOBENZAPRINE HCL [Concomitant]
  6. VITAMIN B-1 [Concomitant]
  7. LEVOTHYROXINE SODIUM [Concomitant]
  8. NOVOLOG [Concomitant]
  9. DOCUSATE NA [Concomitant]
  10. LIPITOR [Concomitant]
  11. PAXIL [Concomitant]
  12. ACETAMINOPHEN AND HYDROCODONE BITARTRATE [Concomitant]
  13. HYDRAZINE [Concomitant]
  14. WARFARIN SODIUM [Concomitant]
  15. LOVENOX [Concomitant]
  16. FLUCONAZOLE [Concomitant]
  17. ACETYLCYCTEINE [Concomitant]
  18. COREG [Concomitant]
  19. ASPIRIN [Concomitant]
  20. ZETIA [Concomitant]
  21. PREVACID [Concomitant]
  22. FERROUS SUL TAB [Concomitant]
  23. NTG SL [Concomitant]
  24. FUROSEMIDE [Concomitant]
  25. PLAVIX [Concomitant]
  26. GABAPENTIN [Concomitant]

REACTIONS (2)
  - PRURITUS [None]
  - RASH GENERALISED [None]
